FAERS Safety Report 7285965-5 (Version None)
Quarter: 2011Q1

REPORT INFORMATION
  Report Type: 
  Country: None (occurrence: None)
  Receive Date: 20110210
  Receipt Date: 20110207
  Transmission Date: 20110831
  Serious: Yes (Life-Threatening, Hospitalization, Other)
  Sender: FDA-Public Use
  Company Number: DE-ABBOTT-11P-062-0703265-00

PATIENT
  Age: 32 Year
  Sex: Male
  Weight: 66 kg

DRUGS (1)
  1. KALETRA [Suspect]
     Indication: PROPHYLAXIS AGAINST HIV INFECTION
     Dosage: DAILY DOSE: 6 TABLETS
     Route: 048
     Dates: start: 20100822, end: 20100922

REACTIONS (1)
  - RENAL FAILURE ACUTE [None]
